FAERS Safety Report 12930929 (Version 1)
Quarter: 2016Q4

REPORT INFORMATION
  Report Type: Spontaneous
  Country: US (occurrence: US)
  Receive Date: 20161110
  Receipt Date: 20161110
  Transmission Date: 20170207
  Serious: No
  Sender: FDA-Public Use
  Company Number: US-JAZZ-2016-US-017732

PATIENT
  Sex: Female

DRUGS (27)
  1. ESTRADIOL. [Concomitant]
     Active Substance: ESTRADIOL
  2. LAMOTRIGINE. [Concomitant]
     Active Substance: LAMOTRIGINE
  3. CALTRATE WITH VITAMIN D [Concomitant]
     Active Substance: CALCIUM CARBONATE\CHOLECALCIFEROL
  4. DUEXIS [Concomitant]
     Active Substance: FAMOTIDINE\IBUPROFEN
  5. FETZIMA [Concomitant]
     Active Substance: LEVOMILNACIPRAN HYDROCHLORIDE
  6. ESCITALOPRAM [Concomitant]
     Active Substance: ESCITALOPRAM OXALATE
  7. XYREM [Suspect]
     Active Substance: SODIUM OXYBATE
     Dosage: 4.5 G, FIRST DOSE
     Route: 048
     Dates: start: 201511
  8. LORAZEPAM. [Concomitant]
     Active Substance: LORAZEPAM
  9. BRINTELLIX [Concomitant]
     Active Substance: VORTIOXETINE HYDROBROMIDE
  10. ETODOLAC. [Concomitant]
     Active Substance: ETODOLAC
  11. XYREM [Suspect]
     Active Substance: SODIUM OXYBATE
     Dosage: DOSE ADJUSTMENTS
     Route: 048
     Dates: start: 201312, end: 201511
  12. BUPROPION HYDROCHLORIDE XL [Concomitant]
     Active Substance: BUPROPION HYDROCHLORIDE
  13. TYLENOL [Concomitant]
     Active Substance: ACETAMINOPHEN
  14. MIMVEY [Concomitant]
     Active Substance: ESTRADIOL\NORETHINDRONE ACETATE
  15. XYREM [Suspect]
     Active Substance: SODIUM OXYBATE
     Indication: NARCOLEPSY
     Dosage: 2.25 G, BID
     Route: 048
     Dates: start: 201311, end: 201312
  16. HYDROCHLOROTHIAZIDE. [Concomitant]
     Active Substance: HYDROCHLOROTHIAZIDE
  17. LATUDA [Concomitant]
     Active Substance: LURASIDONE HYDROCHLORIDE
  18. ASTELIN [Concomitant]
     Active Substance: AZELASTINE HYDROCHLORIDE
  19. MAGNESIUM [Concomitant]
     Active Substance: MAGNESIUM
  20. XANAX [Concomitant]
     Active Substance: ALPRAZOLAM
  21. VIIBRYD [Concomitant]
     Active Substance: VILAZODONE HYDROCHLORIDE
  22. LISINOPRIL. [Concomitant]
     Active Substance: LISINOPRIL
  23. FLUTICASONE PROPIONATE. [Concomitant]
     Active Substance: FLUTICASONE PROPIONATE
  24. NUVIGIL [Concomitant]
     Active Substance: ARMODAFINIL
  25. XYREM [Suspect]
     Active Substance: SODIUM OXYBATE
     Dosage: 3.75 G, SECOND DOSE
     Route: 048
     Dates: start: 201511
  26. ABILIFY [Concomitant]
     Active Substance: ARIPIPRAZOLE
  27. METHOCARBAMOL. [Concomitant]
     Active Substance: METHOCARBAMOL

REACTIONS (1)
  - Headache [Recovered/Resolved]
